FAERS Safety Report 4634534-1 (Version None)
Quarter: 2005Q2

REPORT INFORMATION
  Report Type: 
  Country: None (occurrence: None)
  Receive Date: 20050413
  Receipt Date: 20050405
  Transmission Date: 20051028
  Serious: Yes (Hospitalization)
  Sender: FDA-Public Use
  Company Number: SE-MERCK-0504SWE00014

PATIENT
  Age: 66 Year
  Sex: Female

DRUGS (5)
  1. VIOXX [Suspect]
     Indication: OSTEOARTHRITIS
     Route: 048
     Dates: start: 20000614, end: 20040930
  2. SIMVASTATIN [Concomitant]
     Route: 065
  3. CHOLECALCIFEROL AND CALCIUM CARBONATE [Concomitant]
     Route: 065
  4. FOSAMAX [Concomitant]
     Route: 065
  5. WARFARIN SODIUM [Concomitant]
     Route: 065

REACTIONS (2)
  - ATRIAL FIBRILLATION [None]
  - SYNCOPE [None]
